FAERS Safety Report 16295344 (Version 1)
Quarter: 2019Q2

REPORT INFORMATION
  Report Type: Report from Study
  Country: None (occurrence: IL)
  Receive Date: 20190509
  Receipt Date: 20190509
  Transmission Date: 20190711
  Serious: Yes (Hospitalization)
  Sender: FDA-Public Use
  Company Number: IL-ABBVIE-19K-082-2771675-00

PATIENT

DRUGS (1)
  1. VENCLEXTA [Suspect]
     Active Substance: VENETOCLAX
     Indication: CHRONIC LYMPHOCYTIC LEUKAEMIA
     Route: 048

REACTIONS (7)
  - Asthenia [Unknown]
  - Infection [Unknown]
  - Neutropenia [Unknown]
  - Cytopenia [Unknown]
  - Thrombocytopenia [Unknown]
  - Gastrointestinal disorder [Unknown]
  - Anaemia [Unknown]
